FAERS Safety Report 8483530-5 (Version None)
Quarter: 2012Q3

REPORT INFORMATION
  Report Type: 
  Country: None (occurrence: None)
  Receive Date: 20120702
  Receipt Date: 20120627
  Transmission Date: 20120928
  Serious: Yes (Hospitalization, Disabling)
  Sender: FDA-Public Use
  Company Number: US-MERCK-1112USA02858

PATIENT
  Age: 53 Year
  Sex: Female
  Weight: 78 kg

DRUGS (19)
  1. FOSAMAX [Suspect]
     Route: 048
  2. FOSAMAX [Suspect]
     Route: 048
     Dates: start: 20100901
  3. ASCORBIC ACID [Concomitant]
     Route: 065
  4. CALCIUM (UNSPECIFIED) [Concomitant]
     Route: 065
  5. FOSAMAX [Suspect]
     Route: 048
     Dates: start: 20070101, end: 20080301
  6. ZEBETA [Concomitant]
     Indication: HYPERTENSION
     Route: 065
     Dates: start: 20070101
  7. FOSAMAX PLUS D [Suspect]
     Indication: OSTEOPENIA
     Route: 048
     Dates: start: 20060101, end: 20060401
  8. CARTIA XT [Concomitant]
     Indication: HYPERTENSION
     Route: 065
     Dates: start: 19870101
  9. HYDROCHLOROTHIAZIDE [Concomitant]
     Indication: HYPERTENSION
     Route: 065
     Dates: start: 20020101
  10. FOSAMAX [Suspect]
     Route: 048
     Dates: start: 20070101, end: 20080301
  11. ALENDRONATE SODIUM [Suspect]
     Indication: OSTEOPENIA
     Route: 048
     Dates: start: 20080401, end: 20100901
  12. VITAMIN D (UNSPECIFIED) [Concomitant]
     Route: 065
  13. FOSAMAX PLUS D [Suspect]
     Indication: OSTEOPOROSIS
     Route: 048
     Dates: start: 20060101, end: 20060401
  14. FOSAMAX [Suspect]
     Route: 048
  15. FOSAMAX [Suspect]
     Route: 048
     Dates: start: 20100901
  16. FOSAMAX [Suspect]
     Indication: OSTEOPOROSIS
     Route: 048
     Dates: start: 19990101, end: 20051201
  17. FOSAMAX [Suspect]
     Indication: OSTEOPENIA
     Route: 048
     Dates: start: 19990101, end: 20051201
  18. ALENDRONATE SODIUM [Suspect]
     Indication: OSTEOPOROSIS
     Route: 048
     Dates: start: 20080401, end: 20100901
  19. POTASSIUM CHLORIDE [Concomitant]
     Indication: HYPERTENSION
     Route: 065
     Dates: start: 20020101

REACTIONS (36)
  - HYPERADRENALISM [None]
  - DIARRHOEA [None]
  - FEMUR FRACTURE [None]
  - AORTIC ARTERIOSCLEROSIS [None]
  - COLONIC POLYP [None]
  - SPONDYLOLISTHESIS [None]
  - FRACTURE NONUNION [None]
  - BLOOD DISORDER [None]
  - FALL [None]
  - ANAEMIA POSTOPERATIVE [None]
  - SPINAL OSTEOARTHRITIS [None]
  - RENAL CYST [None]
  - PUBIS FRACTURE [None]
  - CHOLELITHIASIS [None]
  - DRUG ABUSE [None]
  - ARTHRITIS [None]
  - LIGAMENT SPRAIN [None]
  - HAND FRACTURE [None]
  - CARDIOMEGALY [None]
  - ROTATOR CUFF SYNDROME [None]
  - PERICARDIAL EFFUSION [None]
  - LUNG NEOPLASM [None]
  - IRRITABLE BOWEL SYNDROME [None]
  - HAEMORRHOIDS [None]
  - URINARY TRACT INFECTION [None]
  - ANGINA PECTORIS [None]
  - MONARTHRITIS [None]
  - LYMPHADENOPATHY [None]
  - HYPERLIPIDAEMIA [None]
  - INTERVERTEBRAL DISC PROTRUSION [None]
  - TOOTH DISORDER [None]
  - RECTAL HAEMORRHAGE [None]
  - NEUROPATHY PERIPHERAL [None]
  - LOW TURNOVER OSTEOPATHY [None]
  - OSTEOARTHRITIS [None]
  - FOOT DEFORMITY [None]
